FAERS Safety Report 10204631 (Version 1)
Quarter: 2014Q2

REPORT INFORMATION
  Report Type: Spontaneous
  Country: US (occurrence: None)
  Receive Date: 20140527
  Receipt Date: 20140527
  Transmission Date: 20141212
  Serious: Yes (Disabling, Other)
  Sender: FDA-Public Use
  Company Number: None

PATIENT
  Age: 36 Year
  Sex: Female
  Weight: 74.84 kg

DRUGS (2)
  1. NEUTROGENA SUNSCREEN 70 SPF [Suspect]
  2. TIDE DETERGENT [Suspect]

REACTIONS (2)
  - Rash [None]
  - Blister [None]
